FAERS Safety Report 17019919 (Version 1)
Quarter: 2019Q4

REPORT INFORMATION
  Report Type: Spontaneous
  Country: RU (occurrence: RU)
  Receive Date: 20191112
  Receipt Date: 20191112
  Transmission Date: 20200122
  Serious: No
  Sender: FDA-Public Use
  Company Number: RU-BEH-2019109326

PATIENT
  Age: 5 Year
  Sex: Female
  Weight: 14 kg

DRUGS (2)
  1. PRIVIGEN [Suspect]
     Active Substance: HUMAN IMMUNOGLOBULIN G
     Indication: IMMUNE THROMBOCYTOPENIC PURPURA
     Dosage: 150 MILLILITER, TOT
     Route: 042
     Dates: start: 20191105, end: 20191105
  2. HEMOMYCIN [Concomitant]
     Active Substance: AZITHROMYCIN
     Indication: COUGH
     Dosage: 140 MILLIGRAM
     Route: 048
     Dates: start: 20191105, end: 20191109

REACTIONS (2)
  - Pyrexia [Recovered/Resolved]
  - Headache [Recovered/Resolved]

NARRATIVE: CASE EVENT DATE: 20191106
